FAERS Safety Report 5427537-0 (Version None)
Quarter: 2007Q3

REPORT INFORMATION
  Report Type: 
  Country: None (occurrence: None)
  Receive Date: 20070828
  Receipt Date: 20070820
  Transmission Date: 20080115
  Serious: Yes (Other)
  Sender: FDA-Public Use
  Company Number: ES-ABBOTT-07P-144-0373925-00

PATIENT
  Age: 36 Year
  Sex: Female

DRUGS (6)
  1. REDUCTIL [Suspect]
     Indication: OVERWEIGHT
     Route: 048
     Dates: start: 20070601, end: 20070601
  2. REDUCTIL [Suspect]
     Route: 048
     Dates: start: 20070601, end: 20070701
  3. NEOBRUFEN 600 [Suspect]
     Indication: TOOTHACHE
     Route: 048
     Dates: start: 20070601, end: 20070701
  4. AMOXI-CLAVULANICO [Concomitant]
     Indication: TOOTH INFECTION
     Route: 048
     Dates: start: 20070601, end: 20070701
  5. AUGMENTINE 500 [Concomitant]
     Indication: TOOTH INFECTION
     Route: 048
     Dates: start: 20070601, end: 20070701
  6. METAMIZOLE MAGNESIUM [Concomitant]
     Indication: TOOTHACHE
     Dates: start: 20070601, end: 20070701

REACTIONS (1)
  - ABORTION SPONTANEOUS [None]
